FAERS Safety Report 24778158 (Version 1)
Quarter: 2024Q4

REPORT INFORMATION
  Report Type: Spontaneous
  Country: US (occurrence: US)
  Receive Date: 20241226
  Receipt Date: 20241226
  Transmission Date: 20250115
  Serious: No
  Sender: AMGEN
  Company Number: US-AMGEN-USASP2024253233

PATIENT

DRUGS (3)
  1. CARFILZOMIB [Suspect]
     Active Substance: CARFILZOMIB
     Indication: Plasma cell myeloma refractory
     Dosage: UNK, 20/27 MG/M^2 ON DAYS 1, 2, 8, 9, 15 AND 16, IN A 28-DAY CYCLE
     Route: 040
  2. FILGRASTIM [Suspect]
     Active Substance: FILGRASTIM
     Indication: Prophylaxis
     Dosage: UNK
     Route: 065
  3. FILANESIB [Suspect]
     Active Substance: FILANESIB
     Indication: Plasma cell myeloma refractory
     Dosage: 1.25 MILLIGRAM/SQ. METER, ON DAYS 1, 2, 15 AND 16, IN A 28-DAY CYCLE
     Route: 040

REACTIONS (1)
  - Therapeutic product effect incomplete [Unknown]
